FAERS Safety Report 5287664-8 (Version None)
Quarter: 2007Q2

REPORT INFORMATION
  Report Type: 
  Country: None (occurrence: None)
  Receive Date: 20070405
  Receipt Date: 20070328
  Transmission Date: 20071010
  Serious: Yes (Other)
  Sender: FDA-Public Use
  Company Number: HQWYE102229MAR07

PATIENT
  Age: 81 Year
  Sex: Female

DRUGS (3)
  1. ARTANE [Suspect]
     Indication: PARKINSON'S DISEASE
     Route: 048
  2. PARLODEL [Concomitant]
     Dosage: UNKNOWN
     Route: 048
  3. CARBIDOPA AND LEVODOPA [Concomitant]
     Dosage: UNKNOWN
     Route: 048

REACTIONS (1)
  - BLOOD CREATINE PHOSPHOKINASE INCREASED [None]
